FAERS Safety Report 11393580 (Version 2)
Quarter: 2015Q3

REPORT INFORMATION
  Report Type: Report from Study
  Country: US (occurrence: US)
  Receive Date: 20150819
  Receipt Date: 20150823
  Transmission Date: 20151125
  Serious: Yes (Hospitalization)
  Sender: FDA-Public Use
  Company Number: US-AMGEN-USACT2015083794

PATIENT
  Age: 71 Year
  Sex: Male

DRUGS (9)
  1. XGEVA [Concomitant]
     Active Substance: DENOSUMAB
     Dosage: 120 MG, Q3MO
     Route: 058
  2. ZOFRAN [Concomitant]
     Active Substance: ONDANSETRON HYDROCHLORIDE
     Dosage: 8 MG, AS NECESSARY
     Route: 048
  3. CARFILZOMIB [Suspect]
     Active Substance: CARFILZOMIB
     Indication: PROSTATE CANCER METASTATIC
     Dosage: 118 MG, PER CHEMO REGIM
     Route: 042
     Dates: start: 20150413
  4. CENTRUM SILVER                     /02363801/ [Concomitant]
     Active Substance: VITAMINS
     Dosage: 1 UNIT, QD
     Route: 048
  5. DIPHENHYDRAMINE. [Concomitant]
     Active Substance: DIPHENHYDRAMINE
     Dosage: 25 MG, UNK
     Route: 048
  6. LUPRON [Concomitant]
     Active Substance: LEUPROLIDE ACETATE
     Dosage: 22.5 MG, Q3MO
     Route: 030
  7. DEXAMETHASONE. [Concomitant]
     Active Substance: DEXAMETHASONE
     Dosage: 4 MG, UNK
     Route: 042
  8. ACETAMINOPHEN. [Concomitant]
     Active Substance: ACETAMINOPHEN
     Dosage: UNK
  9. ACYCLOVIR                          /00587301/ [Concomitant]
     Active Substance: ACYCLOVIR
     Dosage: 400 MG, BID
     Route: 048

REACTIONS (6)
  - Tremor [Unknown]
  - Pyrexia [Unknown]
  - Nausea [Unknown]
  - Infusion related reaction [Unknown]
  - Hypotension [Unknown]
  - Chills [Unknown]

NARRATIVE: CASE EVENT DATE: 20150511
